FAERS Safety Report 8213592-1 (Version None)
Quarter: 2012Q1

REPORT INFORMATION
  Report Type: 
  Country: None (occurrence: None)
  Receive Date: 20120315
  Receipt Date: 20120309
  Transmission Date: 20120608
  Serious: Yes (Hospitalization)
  Sender: FDA-Public Use
  Company Number: JP-ASTRAZENECA-2012SE16639

PATIENT
  Sex: Male

DRUGS (18)
  1. LYRICA [Suspect]
     Indication: PRODUCT USED FOR UNKNOWN INDICATION
     Route: 048
     Dates: end: 20111220
  2. ATARAX [Suspect]
     Indication: ANXIETY
     Route: 048
     Dates: end: 20111220
  3. ACETAMINOPHEN [Concomitant]
     Indication: PRODUCT USED FOR UNKNOWN INDICATION
     Route: 048
  4. ZOLPIDEM [Suspect]
     Indication: INSOMNIA
     Route: 048
     Dates: end: 20111226
  5. LANTUS [Concomitant]
     Route: 065
  6. XOLAAM [Concomitant]
     Route: 065
  7. HUMALOG [Concomitant]
     Route: 065
  8. LANTUS [Concomitant]
     Indication: INSULIN-REQUIRING TYPE 2 DIABETES MELLITUS
     Route: 065
  9. ADENURIC [Concomitant]
     Indication: PRODUCT USED FOR UNKNOWN INDICATION
     Route: 065
     Dates: end: 20111220
  10. XOLAAM [Concomitant]
     Indication: PRODUCT USED FOR UNKNOWN INDICATION
     Route: 065
  11. ADENURIC [Concomitant]
     Route: 065
  12. TRIMEPRAZINE TARTRATE [Suspect]
     Indication: INSOMNIA
     Route: 048
     Dates: end: 20111220
  13. ACETAMINOPHEN [Concomitant]
     Indication: PRODUCT USED FOR UNKNOWN INDICATION
     Route: 065
  14. HUMALOG [Concomitant]
     Indication: INSULIN-REQUIRING TYPE 2 DIABETES MELLITUS
     Route: 065
  15. CANDESARTAN CILEXETIL AND HYDROCHLOROTHIAZIDE [Suspect]
     Indication: PRODUCT USED FOR UNKNOWN INDICATION
     Route: 048
     Dates: end: 20111201
  16. NITROGLYCERIN [Suspect]
     Indication: PRODUCT USED FOR UNKNOWN INDICATION
     Route: 003
     Dates: end: 20111201
  17. CRESTOR [Concomitant]
     Indication: PRODUCT USED FOR UNKNOWN INDICATION
     Route: 065
  18. ACETAMINOPHEN [Concomitant]
     Route: 065

REACTIONS (3)
  - DISORIENTATION [None]
  - FALL [None]
  - ORTHOSTATIC HYPOTENSION [None]
